FAERS Safety Report 12233626 (Version 1)
Quarter: 2016Q2

REPORT INFORMATION
  Report Type: Report from Study
  Country: US (occurrence: US)
  Receive Date: 20160404
  Receipt Date: 20160404
  Transmission Date: 20160815
  Serious: Yes (Hospitalization, Other)
  Sender: FDA-Public Use
  Company Number: US-GILEAD-2016-0202860

PATIENT
  Age: 76 Year
  Sex: Female

DRUGS (8)
  1. ASPIRIN                            /00002701/ [Concomitant]
     Active Substance: ASPIRIN
  2. EXFORGE [Concomitant]
     Active Substance: AMLODIPINE BESYLATE\VALSARTAN
  3. AMBRISENTAN [Suspect]
     Active Substance: AMBRISENTAN
     Indication: PULMONARY HYPERTENSION
     Dosage: 10 MG, QD
     Route: 065
     Dates: start: 20141124
  4. ALBUTEROL                          /00139501/ [Concomitant]
     Active Substance: ALBUTEROL
  5. ALLOPURINOL. [Concomitant]
     Active Substance: ALLOPURINOL
  6. CLONIDINE. [Concomitant]
     Active Substance: CLONIDINE
  7. BIDIL [Concomitant]
     Active Substance: HYDRALAZINE HYDROCHLORIDE\ISOSORBIDE DINITRATE
  8. COREG [Concomitant]
     Active Substance: CARVEDILOL

REACTIONS (4)
  - Fluid retention [Unknown]
  - Haemodialysis [Recovered/Resolved]
  - Cardiac failure congestive [Unknown]
  - Fluid overload [Recovered/Resolved]

NARRATIVE: CASE EVENT DATE: 20160304
